FAERS Safety Report 7248722-1 (Version None)
Quarter: 2011Q1

REPORT INFORMATION
  Report Type: 
  Country: None (occurrence: None)
  Receive Date: 20110128
  Receipt Date: 20110113
  Transmission Date: 20110831
  Serious: Yes (Death, Other)
  Sender: FDA-Public Use
  Company Number: US-BAYER-2011-008090

PATIENT
  Sex: Male

DRUGS (2)
  1. NAPROXEN SODIUM [Suspect]
     Indication: PRODUCT USED FOR UNKNOWN INDICATION
  2. UNCODEABLE ^INVESTIGATIONAL DRUG^ [Suspect]
     Dosage: UNK
     Dates: end: 20100907

REACTIONS (2)
  - ACUTE MYOCARDIAL INFARCTION [None]
  - LYME DISEASE [None]
